FAERS Safety Report 12969840 (Version 3)
Quarter: 2017Q1

REPORT INFORMATION
  Report Type: Report from Study
  Country: JP (occurrence: JP)
  Receive Date: 20161123
  Receipt Date: 20170310
  Transmission Date: 20170428
  Serious: Yes (Hospitalization)
  Sender: FDA-Public Use
  Company Number: JP-ASTRAZENECA-2016SE90303

PATIENT
  Age: 88 Year
  Sex: Male
  Weight: 60 kg

DRUGS (4)
  1. TAGRISSO [Suspect]
     Active Substance: OSIMERTINIB
     Indication: NON-SMALL CELL LUNG CANCER
     Route: 048
     Dates: start: 20161110
  2. AZUNOL [Concomitant]
     Active Substance: SODIUM GUALENATE
     Route: 062
     Dates: start: 20160713
  3. RINDERON VG [Concomitant]
     Active Substance: BETAMETHASONE VALERATE\GENTAMICIN SULFATE
     Route: 062
     Dates: start: 20160713
  4. TAGRISSO [Suspect]
     Active Substance: OSIMERTINIB
     Indication: NON-SMALL CELL LUNG CANCER
     Route: 048
     Dates: start: 20160714, end: 20160905

REACTIONS (1)
  - Skin erosion [Recovered/Resolved]

NARRATIVE: CASE EVENT DATE: 20160906
